FAERS Safety Report 21062868 (Version 2)
Quarter: 2022Q3

REPORT INFORMATION
  Report Type: Spontaneous
  Country: DE (occurrence: DE)
  Receive Date: 20220711
  Receipt Date: 20220801
  Transmission Date: 20221027
  Serious: Yes (Other)
  Sender: FDA-Public Use
  Company Number: DE-CELLTRION INC.-2022DE010654

PATIENT

DRUGS (1)
  1. RITUXIMAB [Suspect]
     Active Substance: RITUXIMAB
     Indication: T-cell type acute leukaemia
     Dosage: UNK

REACTIONS (3)
  - Hepatitis E [Unknown]
  - Product use in unapproved indication [Unknown]
  - Off label use [Unknown]
